FAERS Safety Report 11074909 (Version 1)
Quarter: 2015Q2

REPORT INFORMATION
  Report Type: Spontaneous
  Country: US (occurrence: US)
  Receive Date: 20150429
  Receipt Date: 20150429
  Transmission Date: 20150821
  Serious: Yes (Other)
  Sender: FDA-Public Use
  Company Number: US-SA-2015SA052688

PATIENT
  Age: 71 Year
  Sex: Male

DRUGS (3)
  1. NOVOLOG [Suspect]
     Active Substance: INSULIN ASPART
     Dosage: DOSE:10 UNIT(S)
     Route: 065
     Dates: start: 201503
  2. SOLOSTAR [Concomitant]
     Active Substance: DEVICE
  3. LANTUS SOLOSTAR [Suspect]
     Active Substance: INSULIN GLARGINE
     Indication: TYPE 2 DIABETES MELLITUS
     Dosage: FREQ.: AM DOSE:36 UNIT(S)
     Route: 065
     Dates: start: 2010

REACTIONS (5)
  - Blood triglycerides increased [Unknown]
  - Amnesia [Unknown]
  - Erectile dysfunction [Unknown]
  - Hyperglycaemia [Unknown]
  - Condition aggravated [Unknown]

NARRATIVE: CASE EVENT DATE: 2012
